FAERS Safety Report 24989557 (Version 4)
Quarter: 2025Q2

REPORT INFORMATION
  Report Type: Report from Study
  Country: DE (occurrence: DE)
  Receive Date: 20250220
  Receipt Date: 20250402
  Transmission Date: 20250717
  Serious: Yes (Life-Threatening, Hospitalization, Other)
  Sender: AUROBINDO
  Company Number: DE-MLMSERVICE-20250129-PI382885-00090-1

PATIENT
  Age: 69 Year
  Sex: Female
  Weight: 56 kg

DRUGS (10)
  1. CEFUROXIME [Suspect]
     Active Substance: CEFUROXIME
     Indication: Antibiotic therapy
     Route: 065
  2. PROPOFOL [Concomitant]
     Active Substance: PROPOFOL
     Indication: Induction of anaesthesia
     Route: 065
  3. SUFENTANIL [Concomitant]
     Active Substance: SUFENTANIL
     Indication: Induction of anaesthesia
     Route: 065
  4. ROCURONIUM [Concomitant]
     Active Substance: ROCURONIUM BROMIDE
     Indication: Product used for unknown indication
     Route: 065
  5. EPINEPHRINE [Concomitant]
     Active Substance: EPINEPHRINE
     Indication: Product used for unknown indication
     Route: 042
  6. NOREPINEPHRINE BITARTRATE [Concomitant]
     Active Substance: NOREPINEPHRINE BITARTRATE
     Indication: Product used for unknown indication
     Route: 042
  7. PREDNISOLONE [Concomitant]
     Active Substance: PREDNISOLONE
     Indication: Product used for unknown indication
     Route: 042
  8. DIMENHYDRINATE [Concomitant]
     Active Substance: DIMENHYDRINATE
     Indication: Product used for unknown indication
     Route: 042
  9. CIMETIDINE [Concomitant]
     Active Substance: CIMETIDINE
     Indication: Product used for unknown indication
     Route: 042
  10. REMIFENTANIL [Concomitant]
     Active Substance: REMIFENTANIL
     Indication: Product used for unknown indication
     Route: 065

REACTIONS (9)
  - Shock symptom [Recovered/Resolved]
  - Type I hypersensitivity [Recovered/Resolved]
  - Flushing [Recovered/Resolved]
  - Bronchospasm [Recovered/Resolved]
  - Hypotension [Recovered/Resolved]
  - Drug hypersensitivity [Recovered/Resolved]
  - Swelling face [Recovered/Resolved]
  - Angioedema [Unknown]
  - Anaphylactic reaction [Unknown]
